FAERS Safety Report 24955354 (Version 1)
Quarter: 2025Q1

REPORT INFORMATION
  Report Type: Spontaneous
  Country: US (occurrence: US)
  Receive Date: 20250211
  Receipt Date: 20250211
  Transmission Date: 20250409
  Serious: Yes (Other)
  Sender: NOVARTIS
  Company Number: US-SANDOZ-SDZ2024US098806

PATIENT
  Sex: Female

DRUGS (8)
  1. CARBAMAZEPINE [Suspect]
     Active Substance: CARBAMAZEPINE
     Indication: Product used for unknown indication
     Route: 065
  2. GILENYA [Suspect]
     Active Substance: FINGOLIMOD HYDROCHLORIDE
     Indication: Relapsing multiple sclerosis
     Dosage: 0.5 MG, QD
     Route: 048
     Dates: start: 20151101, end: 20221101
  3. KESIMPTA [Suspect]
     Active Substance: OFATUMUMAB
     Indication: Relapsing multiple sclerosis
     Dosage: 20 MG, QMO (SOLUTION)
     Route: 058
     Dates: start: 20231206
  4. GABAPENTIN [Suspect]
     Active Substance: GABAPENTIN
     Indication: Product used for unknown indication
     Dosage: UNK, QD
     Route: 065
  5. GABAPENTIN [Suspect]
     Active Substance: GABAPENTIN
     Dosage: UNK, QD (BID)
     Route: 065
  6. BACLOFEN [Suspect]
     Active Substance: BACLOFEN
     Indication: Product used for unknown indication
     Route: 065
  7. CRESTOR [Concomitant]
     Active Substance: ROSUVASTATIN CALCIUM
     Indication: Blood cholesterol increased
     Route: 065
     Dates: start: 20240122
  8. ASPARTAME [Concomitant]
     Active Substance: ASPARTAME
     Indication: Product used for unknown indication
     Route: 065

REACTIONS (17)
  - Blindness [Unknown]
  - Pain [Recovered/Resolved with Sequelae]
  - Endometriosis [Unknown]
  - Stress [Unknown]
  - Asthenia [Unknown]
  - Pain in extremity [Recovered/Resolved]
  - Blood pressure abnormal [Unknown]
  - Nasopharyngitis [Unknown]
  - Limb discomfort [Unknown]
  - Anxiety [Recovered/Resolved with Sequelae]
  - Arthropathy [Unknown]
  - Blood sodium decreased [Unknown]
  - Blood cholesterol increased [Recovered/Resolved with Sequelae]
  - Dizziness [Unknown]
  - Fatigue [Unknown]
  - Circumstance or information capable of leading to medication error [Unknown]
  - Product dose omission issue [Unknown]
